FAERS Safety Report 17686525 (Version 2)
Quarter: 2020Q2

REPORT INFORMATION
  Report Type: Spontaneous
  Country: FR (occurrence: FR)
  Receive Date: 20200420
  Receipt Date: 20200502
  Transmission Date: 20200714
  Serious: Yes (Other)
  Sender: FDA-Public Use
  Company Number: FR-AUROBINDO-AUR-APL-2020-019785

PATIENT
  Age: 42 Year
  Sex: Female

DRUGS (5)
  1. VALACICLOVIR [Suspect]
     Active Substance: VALACYCLOVIR HYDROCHLORIDE
     Indication: PRODUCT USED FOR UNKNOWN INDICATION
     Dosage: UNK
     Route: 048
  2. GANCICLOVIR. [Suspect]
     Active Substance: GANCICLOVIR
     Indication: VARICELLA ZOSTER VIRUS INFECTION
     Dosage: 2 DOSAGE FORM, EVERY WEEK(14 INJECTIONS, 2000 ?G/0.05 ML)
     Route: 031
  3. ACICLOVIR [Suspect]
     Active Substance: ACYCLOVIR
     Indication: PRODUCT USED FOR UNKNOWN INDICATION
     Dosage: 10 MILLIGRAM/KILOGRAM(FOR 8 HOURS)
     Route: 042
  4. ASPIRIN. [Concomitant]
     Active Substance: ASPIRIN
     Indication: ANTIPLATELET THERAPY
     Dosage: 75 MILLIGRAM, ONCE A DAY
     Route: 065
  5. HEPARIN [Concomitant]
     Active Substance: HEPARIN SODIUM
     Indication: ANTIPLATELET THERAPY
     Dosage: UNK
     Route: 065

REACTIONS (3)
  - Product use in unapproved indication [Recovered/Resolved]
  - Macular oedema [Unknown]
  - Product use issue [Recovered/Resolved]
